FAERS Safety Report 4448322-2 (Version None)
Quarter: 2004Q3

REPORT INFORMATION
  Report Type: 
  Country: None (occurrence: None)
  Receive Date: 20040913
  Receipt Date: 20040902
  Transmission Date: 20050211
  Serious: Yes (Life-Threatening, Hospitalization)
  Sender: FDA-Public Use
  Company Number: 2004-06-1150

PATIENT
  Age: 66 Year
  Sex: Male
  Weight: 49 kg

DRUGS (8)
  1. INTRON A [Suspect]
     Indication: HEPATITIS C
     Dosage: 6 MU QD TIW INTRAMUSCULAR
     Route: 030
     Dates: start: 20040311, end: 20040429
  2. REBETOL [Suspect]
     Indication: HEPATITIS C
     Dosage: 600-400 MG ORAL
     Route: 048
     Dates: start: 20040311, end: 20040429
  3. DIOVAN [Concomitant]
  4. GRANDAXIN [Concomitant]
  5. DEPAS [Concomitant]
  6. SELBEX [Concomitant]
  7. METHAPHYLLIN [Concomitant]
  8. GASTER [Concomitant]

REACTIONS (8)
  - ANAEMIA [None]
  - ASTHENIA [None]
  - AUTONOMIC NERVOUS SYSTEM IMBALANCE [None]
  - BLOOD CREATINE PHOSPHOKINASE INCREASED [None]
  - GAIT DISTURBANCE [None]
  - HYPOKALAEMIA [None]
  - MALAISE [None]
  - PARALYSIS [None]
